FAERS Safety Report 8595862 (Version 2)
Quarter: 2012Q4

REPORT INFORMATION
  Report Type: 
  Country: US (occurrence: US)
  Receive Date: 20120605
  Receipt Date: 20121211
  Transmission Date: 20130627
  Serious: No
  Sender: FDA-Public Use
  Company Number: US-BIOGENIDEC-2012BI019527

PATIENT
  Age: 22 Year
  Sex: Female

DRUGS (1)
  1. TYSABRI [Suspect]
     Indication: MULTIPLE SCLEROSIS
     Route: 042
     Dates: start: 20120206

REACTIONS (8)
  - General symptom [Unknown]
  - Renal disorder [Unknown]
  - Contusion [Unknown]
  - Back pain [Unknown]
  - Arthralgia [Not Recovered/Not Resolved]
  - Hot flush [Recovered/Resolved]
  - Hypotension [Recovered/Resolved]
  - Musculoskeletal chest pain [Not Recovered/Not Resolved]
